FAERS Safety Report 15619073 (Version 2)
Quarter: 2022Q4

REPORT INFORMATION
  Report Type: Spontaneous
  Country: GR (occurrence: GR)
  Receive Date: 20181114
  Receipt Date: 20221205
  Transmission Date: 20230113
  Serious: Yes (Other)
  Sender: FDA-Public Use
  Company Number: GR-SA-2018SA297206

PATIENT
  Age: 36 Year
  Sex: Female

DRUGS (2)
  1. OXALIPLATIN [Suspect]
     Active Substance: OXALIPLATIN
     Indication: Colon cancer
  2. CAPECITABINE [Suspect]
     Active Substance: CAPECITABINE
     Indication: Colon cancer

REACTIONS (6)
  - Non-cirrhotic portal hypertension [Unknown]
  - Haematemesis [Unknown]
  - Varices oesophageal [Unknown]
  - Splenomegaly [Unknown]
  - Liver disorder [Unknown]
  - Fibrosis [Unknown]
